FAERS Safety Report 13055218 (Version 1)
Quarter: 2016Q4

REPORT INFORMATION
  Report Type: Report from Study
  Country: IE (occurrence: IE)
  Receive Date: 20161222
  Receipt Date: 20161222
  Transmission Date: 20170207
  Serious: Yes (Hospitalization, Other)
  Sender: FDA-Public Use
  Company Number: IE-AMGEN-IRLSL2016178607

PATIENT
  Age: 81 Year
  Sex: Female

DRUGS (10)
  1. AMIODEX [Concomitant]
     Dosage: 5 MG, UNK
  2. KEPPRA [Concomitant]
     Active Substance: LEVETIRACETAM
     Dosage: 500 MG, BID
  3. ATORVASTATIN [Concomitant]
     Active Substance: ATORVASTATIN
     Dosage: 80 MG, UNK
  4. MAGNESIUM [Concomitant]
     Active Substance: MAGNESIUM
     Dosage: 5 MMOL, BID
  5. SODIUM BICARBONATE. [Concomitant]
     Active Substance: SODIUM BICARBONATE
     Dosage: 600 MG, TID
  6. FOLIC ACID. [Concomitant]
     Active Substance: FOLIC ACID
     Dosage: 5 MG, UNK
  7. PANTOPRAZOLE [Concomitant]
     Active Substance: PANTOPRAZOLE SODIUM
     Dosage: 40 MG, QD
  8. ARANESP [Suspect]
     Active Substance: DARBEPOETIN ALFA
     Indication: CHRONIC KIDNEY DISEASE
     Dosage: 30 MUG, QMO
     Route: 058
     Dates: start: 20160921
  9. RAPORSIN [Concomitant]
     Active Substance: DOXAZOSIN MESYLATE
     Dosage: 8 MG, UNK
  10. WARFARIN [Concomitant]
     Active Substance: WARFARIN
     Dosage: 1 MG, UNK

REACTIONS (4)
  - Haemoglobin abnormal [Unknown]
  - Fatigue [Not Recovered/Not Resolved]
  - Transient ischaemic attack [Recovered/Resolved]
  - Seizure [Recovered/Resolved]

NARRATIVE: CASE EVENT DATE: 201611
